FAERS Safety Report 7207471-6 (Version None)
Quarter: 2011Q1

REPORT INFORMATION
  Report Type: 
  Country: None (occurrence: None)
  Receive Date: 20110103
  Receipt Date: 20101222
  Transmission Date: 20110831
  Serious: Yes (Other)
  Sender: FDA-Public Use
  Company Number: US-PFIZER INC-2010177946

PATIENT
  Sex: Female
  Weight: 81.6 kg

DRUGS (4)
  1. LYRICA [Suspect]
     Indication: FIBROMYALGIA
     Dosage: 75 MG, 1X/DAY
     Route: 048
     Dates: start: 20100401
  2. CYMBALTA [Suspect]
     Indication: ANXIETY
     Dosage: 60 MG, 1X/DAY
     Route: 048
     Dates: start: 20070101
  3. CYMBALTA [Suspect]
     Indication: DEPRESSION
  4. PREMARIN [Concomitant]
     Indication: MENOPAUSAL DISORDER
     Dosage: 0.375 MG, 1X/DAY
     Route: 048

REACTIONS (1)
  - WEIGHT INCREASED [None]
